FAERS Safety Report 19834543 (Version 2)
Quarter: 2021Q3

REPORT INFORMATION
  Report Type: Spontaneous
  Country: NP (occurrence: NP)
  Receive Date: 20210914
  Receipt Date: 20210929
  Transmission Date: 20211014
  Serious: No
  Sender: FDA-Public Use
  Company Number: NP-LUPIN PHARMACEUTICALS INC.-2021-17033

PATIENT
  Age: 24 Year
  Sex: Female

DRUGS (4)
  1. ALBENDAZOLE TABLETS [Suspect]
     Active Substance: ALBENDAZOLE
     Indication: PANCREATITIS ACUTE
     Dosage: 400 MILLIGRAM, QD
     Route: 065
  2. CEFIXIME. [Suspect]
     Active Substance: CEFIXIME
     Indication: PANCREATITIS ACUTE
     Dosage: 200 MILLIGRAM, BID
     Route: 048
  3. CEFIXIME. [Suspect]
     Active Substance: CEFIXIME
     Indication: ASCARIASIS
  4. ALBENDAZOLE TABLETS [Suspect]
     Active Substance: ALBENDAZOLE
     Indication: ASCARIASIS

REACTIONS (1)
  - Exposure during pregnancy [Unknown]
